FAERS Safety Report 13118028 (Version 1)
Quarter: 2017Q1

REPORT INFORMATION
  Report Type: Spontaneous
  Country: US (occurrence: US)
  Receive Date: 20170116
  Receipt Date: 20170116
  Transmission Date: 20170428
  Serious: Yes (Disabling)
  Sender: FDA-Public Use
  Company Number: US-009507513-1701USA005764

PATIENT
  Sex: Female

DRUGS (2)
  1. RECOMBINANT HUMAN INTERLEUKIN-2 (125ALA) [Suspect]
     Active Substance: ALDESLEUKIN
     Dosage: UNK
  2. KEYTRUDA [Suspect]
     Active Substance: PEMBROLIZUMAB
     Dosage: UNK

REACTIONS (2)
  - Disease progression [Unknown]
  - Asthenia [Unknown]
